FAERS Safety Report 8846967 (Version 1)
Quarter: 2012Q4

REPORT INFORMATION
  Report Type: Spontaneous
  Country: US (occurrence: None)
  Receive Date: 20121017
  Receipt Date: 20121017
  Transmission Date: 20130627
  Serious: Yes (Hospitalization)
  Sender: FDA-Public Use
  Company Number: None

PATIENT
  Age: 77 Year
  Sex: Male
  Weight: 96.16 kg

DRUGS (1)
  1. PRADAXA [Suspect]
     Indication: AFIB
     Dosage: 1 capsule
     Route: 048
     Dates: start: 20120901, end: 20121010

REACTIONS (1)
  - Gastrointestinal haemorrhage [None]
